FAERS Safety Report 4264852-0 (Version None)
Quarter: 2004Q1

REPORT INFORMATION
  Report Type: 
  Country: None (occurrence: None)
  Receive Date: 20040105
  Receipt Date: 20031224
  Transmission Date: 20041129
  Serious: Yes (Death, Life-Threatening)
  Sender: FDA-Public Use
  Company Number: OXCD20030017

PATIENT
  Age: 36 Year
  Sex: Male

DRUGS (2)
  1. OXYCODONE HCL [Suspect]
     Dates: start: 20020101, end: 20020101
  2. ALPRAZOLAM [Suspect]
     Dosage: SEE IMAGE
     Route: 048
     Dates: start: 20020101, end: 20020101

REACTIONS (7)
  - BEREAVEMENT [None]
  - CARDIO-RESPIRATORY ARREST [None]
  - FOREIGN BODY ASPIRATION [None]
  - HYPOVENTILATION [None]
  - OVERDOSE [None]
  - PULMONARY OEDEMA [None]
  - SNORING [None]
